FAERS Safety Report 7315876-8 (Version None)
Quarter: 2011Q1

REPORT INFORMATION
  Report Type: 
  Country: None (occurrence: None)
  Receive Date: 20110225
  Receipt Date: 20110215
  Transmission Date: 20110831
  Serious: Yes (Hospitalization, Other)
  Sender: FDA-Public Use
  Company Number: US-ROCHE-734197

PATIENT
  Sex: Male
  Weight: 59 kg

DRUGS (2)
  1. ACCUTANE [Suspect]
     Route: 048
     Dates: start: 19890901, end: 19900301
  2. ACCUTANE [Suspect]
     Indication: ACNE
     Dosage: 40 MG QAM, 20 MG QPM
     Route: 048
     Dates: start: 19861124, end: 19870301

REACTIONS (7)
  - SUICIDAL IDEATION [None]
  - INTESTINAL OBSTRUCTION [None]
  - COLITIS ULCERATIVE [None]
  - DEPRESSION [None]
  - GASTROINTESTINAL INJURY [None]
  - INFLAMMATORY BOWEL DISEASE [None]
  - NEPHROLITHIASIS [None]
